FAERS Safety Report 25933622 (Version 1)
Quarter: 2025Q4

REPORT INFORMATION
  Report Type: Spontaneous
  Country: US (occurrence: US)
  Receive Date: 20251017
  Receipt Date: 20251017
  Transmission Date: 20260118
  Serious: Yes (Life-Threatening, Hospitalization, Other)
  Sender: AUROBINDO
  Company Number: US-MLMSERVICE-20250929-PI659973-00152-1

PATIENT
  Age: 41 Year
  Sex: Female

DRUGS (4)
  1. OXALIPLATIN [Suspect]
     Active Substance: OXALIPLATIN
     Indication: Adenocarcinoma of colon
     Dosage: 85 MILLIGRAM/SQ. METER, CYCLICAL (~OXALIPLATIN 85 MG/M2. SHE WAS PLANNED TO UNDERGO AN INFUSION EVER
     Route: 065
  2. FLUOROURACIL [Suspect]
     Active Substance: FLUOROURACIL
     Indication: Adenocarcinoma of colon
     Dosage: 400 MILLIGRAM/SQ. METER (5-FU 400 MG/M2 BOLUS FOLLOWED BY 2,400 MG/M2 INFUSION)
     Route: 065
  3. FLUOROURACIL [Suspect]
     Active Substance: FLUOROURACIL
     Dosage: 2400 MILLIGRAM/SQ. METER, CYCLICAL (5-FU 400 MG/M2 BOLUS FOLLOWED BY 2,400 MG/M2 INFUSION. SHE WAS P
     Route: 065
  4. LEUCOVORIN [Suspect]
     Active Substance: LEUCOVORIN\LEUCOVORIN CALCIUM
     Indication: Adenocarcinoma of colon
     Dosage: 400 MILLIGRAM/SQ. METER, CYCLICAL (LEUCOVORIN 400 MG/M2. SHE WAS PLANNED TO UNDERGO AN INFUSION EVER
     Route: 065

REACTIONS (3)
  - Acute myocardial infarction [Recovered/Resolved]
  - Arteriospasm coronary [Recovered/Resolved]
  - Ventricular tachycardia [Recovered/Resolved]
